FAERS Safety Report 11825551 (Version 4)
Quarter: 2018Q1

REPORT INFORMATION
  Report Type: Spontaneous
  Country: US (occurrence: US)
  Receive Date: 20151211
  Receipt Date: 20180208
  Transmission Date: 20180508
  Serious: No
  Sender: FDA-Public Use
  Company Number: US-JNJFOC-20150603881

PATIENT
  Age: 81 Year
  Sex: Female

DRUGS (15)
  1. NEXIUM [Concomitant]
     Active Substance: ESOMEPRAZOLE MAGNESIUM
  2. ALEVE [Concomitant]
     Active Substance: NAPROXEN SODIUM
  3. BISOPROLOL FUMARATE. [Concomitant]
     Active Substance: BISOPROLOL FUMARATE
  4. ALBUTEROL. [Concomitant]
     Active Substance: ALBUTEROL
  5. METOPROLOL SUCCINATE. [Concomitant]
     Active Substance: METOPROLOL SUCCINATE
     Dates: start: 201708
  6. ASPIRIN. [Concomitant]
     Active Substance: ASPIRIN
  7. IMBRUVICA [Suspect]
     Active Substance: IBRUTINIB
     Indication: CHRONIC LYMPHOCYTIC LEUKAEMIA
     Route: 048
     Dates: start: 2014, end: 2017
  8. POTASSIUM [Concomitant]
     Active Substance: POTASSIUM
  9. ELIQUIS [Concomitant]
     Active Substance: APIXABAN
  10. IMBRUVICA [Suspect]
     Active Substance: IBRUTINIB
     Indication: CHRONIC LYMPHOCYTIC LEUKAEMIA
     Route: 048
     Dates: start: 20141219
  11. ONDANSETRON [Concomitant]
     Active Substance: ONDANSETRON
  12. TACTINAL [Concomitant]
  13. IMBRUVICA [Suspect]
     Active Substance: IBRUTINIB
     Indication: CHRONIC LYMPHOCYTIC LEUKAEMIA
     Route: 048
     Dates: start: 20141219, end: 2017
  14. WARFARIN [Suspect]
     Active Substance: WARFARIN
     Indication: PRODUCT USED FOR UNKNOWN INDICATION
     Route: 065
  15. ZOFRAN [Concomitant]
     Active Substance: ONDANSETRON HYDROCHLORIDE

REACTIONS (13)
  - Asthenia [Unknown]
  - White blood cell count increased [Recovered/Resolved]
  - Nausea [Unknown]
  - Weight increased [Unknown]
  - Injection site rash [Unknown]
  - Off label use [Unknown]
  - Injection site pain [Unknown]
  - Rash [Recovering/Resolving]
  - Incorrect dose administered [Unknown]
  - White blood cell count increased [Unknown]
  - Blood pressure fluctuation [Unknown]
  - Swollen tongue [Unknown]
  - Contusion [Unknown]

NARRATIVE: CASE EVENT DATE: 20141219
